FAERS Safety Report 5136712-4 (Version None)
Quarter: 2006Q4

REPORT INFORMATION
  Report Type: 
  Country: None (occurrence: None)
  Receive Date: 20061023
  Receipt Date: 20061009
  Transmission Date: 20070319
  Serious: Yes (Hospitalization)
  Sender: FDA-Public Use
  Company Number: GXKR2006GB06425

PATIENT
  Age: 18 Year
  Sex: Female

DRUGS (3)
  1. CEFUROXIME AXETIL [Suspect]
     Indication: PYREXIA
  2. METRONIDAZOLE [Suspect]
     Indication: PYREXIA
  3. ANAESTHETICS (NO INGREDIENTS/SUBSTANCES) [Suspect]
     Indication: APPENDICECTOMY

REACTIONS (5)
  - ABORTION SPONTANEOUS [None]
  - ACUTE RESPIRATORY DISTRESS SYNDROME [None]
  - APPENDICECTOMY [None]
  - DRUG EXPOSURE DURING PREGNANCY [None]
  - PROCEDURAL COMPLICATION [None]
